FAERS Safety Report 6545736-1 (Version None)
Quarter: 2010Q1

REPORT INFORMATION
  Report Type: 
  Country: None (occurrence: None)
  Receive Date: 20100119
  Receipt Date: 20100104
  Transmission Date: 20100710
  Serious: Yes (Death, Hospitalization)
  Sender: FDA-Public Use
  Company Number: 2009AC000398

PATIENT
  Age: 88 Year
  Sex: Female

DRUGS (27)
  1. AMIDE [Suspect]
     Dosage: PO
     Route: 048
  2. ATENOLOL [Concomitant]
  3. LASIX [Concomitant]
  4. ASPIRIN [Concomitant]
  5. AMLODIPINE [Concomitant]
  6. POTASSIUM [Concomitant]
  7. DIOVAN [Concomitant]
  8. PROTONIX [Concomitant]
  9. HUMALOG [Concomitant]
  10. LANTUS [Concomitant]
  11. GUAIFENESIN [Concomitant]
  12. FLAGYL [Concomitant]
  13. LEVAQUIN [Concomitant]
  14. CATAPRES [Concomitant]
  15. INDOMETHACIN [Concomitant]
  16. DYAZIDE [Concomitant]
  17. NORVASC [Concomitant]
  18. NITROFURANTOIN [Concomitant]
  19. NORVASC [Concomitant]
  20. LASIX [Concomitant]
  21. K-DUR [Concomitant]
  22. NITROFURANTOIN [Concomitant]
  23. HUMALOG [Concomitant]
  24. LANTUS [Concomitant]
  25. GENTAMICIN OINTMENT [Concomitant]
  26. FUROSEMIDE [Concomitant]
  27. TRIAMTERENE AND HYDROCHLOROTHIAZIDE [Concomitant]

REACTIONS (20)
  - ARTERIOSCLEROSIS [None]
  - ASTHENIA [None]
  - BLINDNESS UNILATERAL [None]
  - CARDIAC FAILURE CONGESTIVE [None]
  - CORNEAL OPACITY [None]
  - DEATH OF RELATIVE [None]
  - DIASTOLIC DYSFUNCTION [None]
  - DYSPHAGIA [None]
  - ECONOMIC PROBLEM [None]
  - ELECTROCARDIOGRAM ST SEGMENT ABNORMAL [None]
  - FATIGUE [None]
  - HYPOGLYCAEMIA [None]
  - MULTIPLE INJURIES [None]
  - PAIN [None]
  - PERIPHERAL VASCULAR DISORDER [None]
  - PLEURAL EFFUSION [None]
  - PNEUMONIA ASPIRATION [None]
  - SOCIAL PROBLEM [None]
  - SURGERY [None]
  - TREATMENT NONCOMPLIANCE [None]
